FAERS Safety Report 5500160-5 (Version None)
Quarter: 2007Q4

REPORT INFORMATION
  Report Type: 
  Country: None (occurrence: None)
  Receive Date: 20071025
  Receipt Date: 20071010
  Transmission Date: 20080405
  Serious: Yes (Death, Hospitalization)
  Sender: FDA-Public Use
  Company Number: 2007SP018569

PATIENT
  Age: 40 Year
  Sex: Female

DRUGS (1)
  1. TEMODAL [Suspect]
     Indication: GLIOBLASTOMA MULTIFORME
     Dosage: 75 MG/M2; QD;
     Dates: start: 20070618, end: 20070723

REACTIONS (9)
  - ASPERGILLOSIS [None]
  - COMA [None]
  - GENERAL PHYSICAL HEALTH DETERIORATION [None]
  - MULTI-ORGAN FAILURE [None]
  - NEUTROPENIA [None]
  - OPPORTUNISTIC INFECTION [None]
  - PNEUMOCYSTIS JIROVECI PNEUMONIA [None]
  - STREPTOCOCCAL SEPSIS [None]
  - THROMBOCYTOPENIA [None]
